FAERS Safety Report 6175743-2 (Version None)
Quarter: 2009Q2

REPORT INFORMATION
  Report Type: 
  Country: None (occurrence: None)
  Receive Date: 20090501
  Receipt Date: 20090428
  Transmission Date: 20091009
  Serious: Yes (Other)
  Sender: FDA-Public Use
  Company Number: CN-ASTRAZENECA-2009AP02911

PATIENT
  Age: 34 Year
  Sex: Female

DRUGS (2)
  1. LIDOCAINE [Suspect]
     Indication: CAESAREAN SECTION
     Route: 008
     Dates: start: 20080526, end: 20080526
  2. OXYTOCIN [Concomitant]
     Dates: start: 20080526, end: 20080526

REACTIONS (2)
  - COMA [None]
  - SHOCK [None]
